FAERS Safety Report 4602955-9 (Version None)
Quarter: 2005Q1

REPORT INFORMATION
  Report Type: 
  Country: None (occurrence: None)
  Receive Date: 20050307
  Receipt Date: 20050224
  Transmission Date: 20050727
  Serious: Yes (Hospitalization)
  Sender: FDA-Public Use
  Company Number: K200401840

PATIENT
  Age: 60 Year
  Sex: Female

DRUGS (12)
  1. ALTACE [Suspect]
     Dosage: 10 MG, QD; ORAL, 10 MG QD; ORAL
     Route: 048
     Dates: start: 20020101, end: 20041029
  2. ALTACE [Suspect]
     Dosage: 10 MG, QD; ORAL, 10 MG QD; ORAL
     Route: 048
     Dates: start: 20050122
  3. DILTIAZEM [Suspect]
     Dosage: 300 MG, QD; ORAL, 300 MG, QD; ORAL
     Dates: start: 20020101, end: 20041029
  4. DILTIAZEM [Suspect]
     Dosage: 300 MG, QD; ORAL, 300 MG, QD; ORAL
     Dates: start: 20050111
  5. EUPRESSYL (URAPIDIL) CAPSULE, 60 MG [Suspect]
     Dosage: 120 MG, QD; ORAL, 120 MG, QD; ORAL
     Route: 048
     Dates: start: 20020101, end: 20041029
  6. EUPRESSYL (URAPIDIL) CAPSULE, 60 MG [Suspect]
     Dosage: 120 MG, QD; ORAL, 120 MG, QD; ORAL
     Route: 048
     Dates: start: 20050111
  7. ZOLOFT [Suspect]
     Dosage: 50 MG, QD; ORAL, 50 MG, QD; ORAL
     Route: 048
     Dates: start: 20020101, end: 20041029
  8. ZOLOFT [Suspect]
     Dosage: 50 MG, QD; ORAL, 50 MG, QD; ORAL
     Route: 048
     Dates: start: 20050111
  9. SIMVASTATIN [Suspect]
     Dosage: 30 MG, QD; ORAL, 30 MG, QD; ORAL
     Route: 048
     Dates: start: 20020101, end: 20041029
  10. SIMVASTATIN [Suspect]
     Dosage: 30 MG, QD; ORAL, 30 MG, QD; ORAL
     Route: 048
     Dates: start: 20050111
  11. GLUCOR (ACARBOSE) TABLET, 50MG [Suspect]
     Dosage: 150 MG, QD; ORAL, 150 MG, QD, ORAL
     Route: 048
     Dates: start: 20040901, end: 20041029
  12. GLUCOR (ACARBOSE) TABLET, 50MG [Suspect]
     Dosage: 150 MG, QD; ORAL, 150 MG, QD, ORAL
     Route: 048
     Dates: start: 20050111

REACTIONS (2)
  - CYTOLYTIC HEPATITIS [None]
  - PANCREATITIS NECROTISING [None]
